FAERS Safety Report 23291614 (Version 2)
Quarter: 2024Q4

REPORT INFORMATION
  Report Type: Spontaneous
  Country: US (occurrence: US)
  Receive Date: 20231213
  Receipt Date: 20241217
  Transmission Date: 20250115
  Serious: No
  Sender: ALVOGEN
  Company Number: US-ALVOGEN-2023089159

PATIENT
  Sex: Female

DRUGS (9)
  1. FENTANYL [Suspect]
     Active Substance: FENTANYL
     Indication: Pain
     Dosage: FENTANYL PATCHES WERE USED COUPLE OF MONTHS BACK.
  2. FENTANYL [Suspect]
     Active Substance: FENTANYL
     Indication: Pain
     Dosage: STRENGTH: 75 MCG/HOUR?EXPIRATION DATE: AUG-2025
  3. FENTANYL [Suspect]
     Active Substance: FENTANYL
     Indication: Pain
     Dosage: STRENGTH: 75 MCG/HOUR?EXPIRATION DATE: UU-MAY-2027
  4. OXYCODONE [Concomitant]
     Active Substance: OXYCODONE
     Indication: Pain
     Dosage: 5 TIMES A DAY?MALLINKRODT
  5. ESZOPICLONE [Concomitant]
     Active Substance: ESZOPICLONE
     Indication: Insomnia
     Dosage: ONE AT BEDTIME
  6. DEXTROMETHORPHAN HYDROBROMIDE [Concomitant]
     Active Substance: DEXTROMETHORPHAN HYDROBROMIDE
     Indication: Sleep apnoea syndrome
     Dosage: NIGHT TIME
  7. TIZANIDINE [Concomitant]
     Active Substance: TIZANIDINE
     Indication: Muscle relaxant therapy
     Dosage: 4 MG 3 TIMES A DAY
  8. COCAINE [Concomitant]
     Active Substance: COCAINE
     Indication: Product used for unknown indication
  9. LYSERGIDE [Concomitant]
     Active Substance: LYSERGIDE
     Indication: Product used for unknown indication

REACTIONS (5)
  - Cough [Unknown]
  - COVID-19 [Unknown]
  - Device physical property issue [Unknown]
  - Drug effect less than expected [Unknown]
  - Wrong technique in device usage process [Unknown]
